FAERS Safety Report 18851958 (Version 1)
Quarter: 2021Q1

REPORT INFORMATION
  Report Type: Spontaneous
  Country: DE (occurrence: DE)
  Receive Date: 20210205
  Receipt Date: 20210205
  Transmission Date: 20210420
  Serious: Yes (Other)
  Sender: FDA-Public Use
  Company Number: DE-TEVA-2021-DE-1876303

PATIENT
  Age: 67 Year
  Sex: Male

DRUGS (1)
  1. LEVODOPA/CARBIDOPA?RATIOPHARM 100 MG/25 MG TABLETTEN [Suspect]
     Active Substance: CARBIDOPA\LEVODOPA
     Indication: PARKINSON^S DISEASE
     Dosage: CONTAINS 100 MG LEVODOPA AND 25 MG CARBIDOPA
     Route: 065
     Dates: start: 2020

REACTIONS (3)
  - Product label issue [Unknown]
  - Coma [Recovered/Resolved]
  - Cardiac arrest [Recovered/Resolved]

NARRATIVE: CASE EVENT DATE: 202005
